FAERS Safety Report 8156541-7 (Version None)
Quarter: 2012Q1

REPORT INFORMATION
  Report Type: 
  Country: None (occurrence: None)
  Receive Date: 20120222
  Receipt Date: 20120210
  Transmission Date: 20120608
  Serious: Yes (Hospitalization, Other)
  Sender: FDA-Public Use
  Company Number: US-ACTELION-A-US2012-60480

PATIENT

DRUGS (5)
  1. REMODULIN [Concomitant]
  2. TRACLEER [Suspect]
     Indication: PULMONARY ARTERIAL HYPERTENSION
     Dosage: 125 MG, BID
     Route: 048
     Dates: start: 20071016, end: 20120124
  3. TRACLEER [Suspect]
     Dosage: 62.5 MG, BID
     Route: 048
     Dates: start: 20071016, end: 20071101
  4. CIPROFLOXACIN [Suspect]
  5. REVATIO [Concomitant]

REACTIONS (6)
  - LIVER FUNCTION TEST ABNORMAL [None]
  - MEDICAL DEVICE COMPLICATION [None]
  - BLOOD ALKALINE PHOSPHATASE INCREASED [None]
  - CENTRAL VENOUS CATHETERISATION [None]
  - ALANINE AMINOTRANSFERASE INCREASED [None]
  - ASPARTATE AMINOTRANSFERASE INCREASED [None]
